FAERS Safety Report 8089582-9 (Version None)
Quarter: 2012Q1

REPORT INFORMATION
  Report Type: 
  Country: None (occurrence: None)
  Receive Date: 20120128
  Receipt Date: 20110627
  Transmission Date: 20120608
  Serious: No
  Sender: FDA-Public Use
  Company Number: US-ABBOTT-11P-163-0835031-00

PATIENT
  Sex: Female

DRUGS (5)
  1. PANTOTHENIC [Concomitant]
     Indication: VITAMIN SUPPLEMENTATION
     Dosage: OTC
  2. CITRACAL + D [Concomitant]
     Indication: SUPPLEMENTATION THERAPY
  3. HUMIRA [Suspect]
     Indication: PSORIATIC ARTHROPATHY
     Dates: start: 20110501
  4. CLOBETASOL [Concomitant]
     Indication: PSORIASIS
  5. MULTI-VITAMIN [Concomitant]
     Indication: VITAMIN SUPPLEMENTATION

REACTIONS (2)
  - RASH PRURITIC [None]
  - RASH PAPULAR [None]
